FAERS Safety Report 21766484 (Version 7)
Quarter: 2024Q3

REPORT INFORMATION
  Report Type: Spontaneous
  Country: US (occurrence: US)
  Receive Date: 20221222
  Receipt Date: 20240719
  Transmission Date: 20241016
  Serious: Yes (Other)
  Sender: DAIICHI
  Company Number: US-DSJP-DSU-2022-146377AA

PATIENT
  Age: 49 Year
  Sex: Female

DRUGS (2)
  1. ENHERTU [Suspect]
     Active Substance: FAM-TRASTUZUMAB DERUXTECAN-NXKI
     Indication: HER2 low breast cancer
     Dosage: UNK, ONCE EVERY 1 MONTH
     Route: 065
     Dates: start: 20180201
  2. ENHERTU [Suspect]
     Active Substance: FAM-TRASTUZUMAB DERUXTECAN-NXKI
     Indication: Breast cancer metastatic
     Dosage: UNK (FOR 6 YEARS AND GOING INTO HER SEVENTH YEAR)
     Route: 065

REACTIONS (11)
  - Hepatic lesion [Not Recovered/Not Resolved]
  - Gastrointestinal disorder [Recovered/Resolved]
  - Hypersomnia [Not Recovered/Not Resolved]
  - Liver scan abnormal [Unknown]
  - Neoplasm malignant [Recovered/Resolved]
  - Nausea [Recovered/Resolved]
  - Fatigue [Not Recovered/Not Resolved]
  - Lethargy [Not Recovered/Not Resolved]
  - Metastases to liver [Unknown]
  - Disease progression [Unknown]
  - Off label use [Unknown]

NARRATIVE: CASE EVENT DATE: 20180201
